FAERS Safety Report 7466958-1 (Version None)
Quarter: 2011Q2

REPORT INFORMATION
  Report Type: 
  Country: None (occurrence: None)
  Receive Date: 20110509
  Receipt Date: 20101005
  Transmission Date: 20111010
  Serious: No
  Sender: FDA-Public Use
  Company Number: US-ALEXION-A201001276

PATIENT
  Sex: Male

DRUGS (12)
  1. IMODIUM                            /00384302/ [Concomitant]
     Dosage: UNK
  2. MULTI-VITAMINS [Concomitant]
     Dosage: UNK
  3. WELCHOL [Concomitant]
     Dosage: UNK
  4. SOLIRIS [Suspect]
     Indication: PAROXYSMAL NOCTURNAL HAEMOGLOBINURIA
     Dosage: 1500 MG, Q2W
     Route: 042
  5. NEXIUM [Concomitant]
     Dosage: UNK
  6. CITRACAL [Concomitant]
     Dosage: UNK
  7. EFFEXOR [Concomitant]
     Dosage: UNK
  8. PREDNISONE [Concomitant]
     Dosage: UNK
  9. REMICADE [Concomitant]
     Dosage: UNK
  10. XANAX [Concomitant]
  11. ASACOL [Concomitant]
     Dosage: UNK
  12. CANASA [Concomitant]
     Dosage: UNK

REACTIONS (5)
  - FATIGUE [None]
  - HAEMOLYSIS [None]
  - CHROMATURIA [None]
  - DYSPHAGIA [None]
  - HEADACHE [None]
